FAERS Safety Report 8711255 (Version 2)
Quarter: 2012Q4

REPORT INFORMATION
  Report Type: Report from Study
  Country: FR (occurrence: FR)
  Receive Date: 20120807
  Receipt Date: 20120907
  Transmission Date: 20130627
  Serious: Yes (Hospitalization)
  Sender: FDA-Public Use
  Company Number: PHHY2012FR067835

PATIENT
  Age: 74 None
  Sex: Female
  Weight: 98 kg

DRUGS (12)
  1. ACLASTA [Suspect]
     Indication: OSTEOPOROSIS
     Dosage: UNK UKN, UNK
     Route: 042
     Dates: start: 20110704
  2. ARIMIDEX [Concomitant]
     Indication: BREAST CANCER
     Dosage: UNK UKN, UNK
     Dates: start: 2006
  3. AMLOR [Concomitant]
     Dosage: UNK UKN, UNK
     Dates: end: 2011
  4. AMLODIPINE [Concomitant]
     Dosage: UNK UKN, UNK
     Dates: start: 201111, end: 201201
  5. PIASCLEDINE [Concomitant]
  6. LEVOTHYROX [Concomitant]
  7. UVEDOSE [Concomitant]
     Dosage: UNK UKN, UNK
     Dates: start: 2011
  8. DAFALGAN [Concomitant]
     Dosage: UNK UKN, UNK
     Dates: start: 2011
  9. TEMERIT [Concomitant]
     Dosage: UNK UKN, UNK
     Dates: start: 2012
  10. TRIATEC [Concomitant]
     Indication: HYPERTENSION
     Dosage: UNK UKN, UNK
     Dates: start: 2012
  11. KARDEGIC [Concomitant]
     Dosage: UNK UKN, UNK
     Dates: start: 2012
  12. SODIUM CHLORIDE [Concomitant]
     Dosage: UNK UKN, UNK
     Dates: start: 2012

REACTIONS (2)
  - Nasal polyps [Unknown]
  - Respiratory disorder [Unknown]
